FAERS Safety Report 8856323 (Version 1)
Quarter: 2012Q4

REPORT INFORMATION
  Report Type: Spontaneous
  Country: US (occurrence: None)
  Receive Date: 20121018
  Receipt Date: 20121018
  Transmission Date: 20130627
  Serious: Yes (Other)
  Sender: FDA-Public Use
  Company Number: 2012MA012246

PATIENT
  Age: 74 Year
  Sex: Female

DRUGS (2)
  1. METFORMIN HYDROCHLORIDE [Suspect]
     Indication: DIABETES
  2. LANTUS [Suspect]
     Indication: DIABETES
     Route: 058

REACTIONS (5)
  - Hypoglycaemia [None]
  - Emotional disorder [None]
  - Stress [None]
  - Visual impairment [None]
  - Death of relative [None]
